FAERS Safety Report 4972109-5 (Version None)
Quarter: 2006Q2

REPORT INFORMATION
  Report Type: 
  Country: None (occurrence: None)
  Receive Date: 20060412
  Receipt Date: 20060412
  Transmission Date: 20061013
  Serious: Yes (Hospitalization)
  Sender: FDA-Public Use
  Company Number: None

PATIENT
  Sex: Male
  Weight: 72.2 kg

DRUGS (6)
  1. CYCLOPHOSPHAMIDE [Suspect]
     Indication: DIFFUSE LARGE B-CELL LYMPHOMA
     Dosage: 1380 MG
     Dates: start: 20060323, end: 20060327
  2. DOXORUBICIN HCL [Suspect]
     Dosage: 72 MG
     Dates: start: 20060323, end: 20060327
  3. ETOPOSIDE [Suspect]
     Dosage: 368 MG
     Dates: start: 20060323, end: 20060327
  4. G-CSF (FILGRASTIM, AMGEN) [Suspect]
     Dosage: 1500 MCG
     Dates: start: 20060323, end: 20060401
  5. PREDNISONE [Suspect]
     Dosage: 600 MG
     Dates: start: 20060323, end: 20060327
  6. VINCRISTINE SULFATE [Suspect]
     Dosage: 2.9 MG
     Dates: start: 20060323, end: 20060327

REACTIONS (4)
  - CHILLS [None]
  - CONDITION AGGRAVATED [None]
  - IRRITABLE BOWEL SYNDROME [None]
  - RECTAL ABSCESS [None]
